FAERS Safety Report 16447495 (Version 1)
Quarter: 2019Q2

REPORT INFORMATION
  Report Type: Spontaneous
  Country: HU (occurrence: HU)
  Receive Date: 20190619
  Receipt Date: 20190619
  Transmission Date: 20190711
  Serious: Yes (Other)
  Sender: FDA-Public Use
  Company Number: PHHY2019HU137473

PATIENT
  Age: 70 Year
  Sex: Female

DRUGS (6)
  1. LETROZOLE. [Suspect]
     Active Substance: LETROZOLE
     Indication: INVASIVE DUCTAL BREAST CARCINOMA
     Dosage: UNK
     Route: 065
     Dates: start: 201809, end: 2019
  2. RIBOCICLIB. [Suspect]
     Active Substance: RIBOCICLIB
     Indication: INVASIVE DUCTAL BREAST CARCINOMA
     Dosage: UNK
     Route: 065
     Dates: start: 201809, end: 2019
  3. TAXOTERE [Suspect]
     Active Substance: DOCETAXEL
     Indication: INVASIVE DUCTAL BREAST CARCINOMA
     Dosage: UNK UNK, 6 CYCLES
     Route: 065
     Dates: start: 20180320, end: 20180705
  4. SYNCUMAR [Concomitant]
     Active Substance: ACENOCOUMAROL
     Indication: PULMONARY EMBOLISM
     Dosage: UNK
     Route: 065
  5. ADRIAMYCIN [Suspect]
     Active Substance: DOXORUBICIN HYDROCHLORIDE
     Indication: INVASIVE DUCTAL BREAST CARCINOMA
     Dosage: UNK UNK, 6 CYCLES
     Route: 065
     Dates: start: 20180320, end: 20180705
  6. CYTOXAN [Suspect]
     Active Substance: CYCLOPHOSPHAMIDE
     Indication: INVASIVE DUCTAL BREAST CARCINOMA
     Dosage: UNK UNK,6 CYCLES
     Route: 065
     Dates: start: 20180320, end: 20180705

REACTIONS (3)
  - Metastases to lung [Not Recovered/Not Resolved]
  - Atrial fibrillation [Unknown]
  - Bone disorder [Unknown]

NARRATIVE: CASE EVENT DATE: 201807
